FAERS Safety Report 23964249 (Version 1)
Quarter: 2024Q2

REPORT INFORMATION
  Report Type: Spontaneous
  Country: ES (occurrence: ES)
  Receive Date: 20240612
  Receipt Date: 20240612
  Transmission Date: 20240715
  Serious: Yes (Life-Threatening, Hospitalization, Other)
  Sender: FDA-Public Use
  Company Number: None

PATIENT
  Age: 24 Year
  Sex: Female

DRUGS (2)
  1. NIVOLUMAB [Suspect]
     Active Substance: NIVOLUMAB
     Indication: Central nervous system melanoma
     Dates: start: 20221010
  2. IPILIMUMAB [Suspect]
     Active Substance: IPILIMUMAB
     Indication: Central nervous system melanoma
     Dates: start: 20230711

REACTIONS (3)
  - Immune-mediated thyroiditis [Not Recovered/Not Resolved]
  - Autoimmune colitis [Recovered/Resolved]
  - Rectal haemorrhage [Recovered/Resolved]

NARRATIVE: CASE EVENT DATE: 20230812
